FAERS Safety Report 9036405 (Version 1)
Quarter: 2013Q1

REPORT INFORMATION
  Report Type: Spontaneous
  Country: GB (occurrence: None)
  Receive Date: 20130114
  Receipt Date: 20130114
  Transmission Date: 20140127
  Serious: Yes (Disabling)
  Sender: FDA-Public Use
  Company Number: GER/UKI/13/0027372

PATIENT
  Age: 33 Year
  Sex: Female
  Weight: 88 kg

DRUGS (3)
  1. FLUOXETINE (FLUOXETINE) [Suspect]
     Indication: PRODUCT USED FOR UNKNOWN INDICATION
     Dates: start: 20120829
  2. GENTAMICIN (GENTAMICIN) [Concomitant]
  3. YASMIN (DROSPIRENONE W/ETHINYLESTRADIOL) [Concomitant]

REACTIONS (1)
  - Psychotic disorder [None]
